FAERS Safety Report 23202515 (Version 2)
Quarter: 2023Q4

REPORT INFORMATION
  Report Type: Other
  Country: IE (occurrence: None)
  Receive Date: 20231120
  Receipt Date: 20231128
  Transmission Date: 20240110
  Serious: Yes (Other)
  Sender: FDA-Public Use
  Company Number: IE-ROCHE-3434555

PATIENT
  Sex: Male

DRUGS (2)
  1. OCREVUS [Suspect]
     Active Substance: OCRELIZUMAB
     Indication: Multiple sclerosis
     Route: 042
     Dates: start: 20201007
  2. OCREVUS [Suspect]
     Active Substance: OCRELIZUMAB
     Dosage: 600MGS X 2 VIALS 300MGS
     Route: 042

REACTIONS (10)
  - Mobility decreased [Unknown]
  - General physical health deterioration [Unknown]
  - Insomnia [Unknown]
  - Heart rate increased [Not Recovered/Not Resolved]
  - White blood cell count increased [Not Recovered/Not Resolved]
  - Urinary tract infection [Unknown]
  - Lower respiratory tract infection [Unknown]
  - Neutrophil count increased [Unknown]
  - Body temperature decreased [Unknown]
  - Infection [Unknown]

NARRATIVE: CASE EVENT DATE: 20231003
